FAERS Safety Report 6084237-4 (Version None)
Quarter: 2009Q1

REPORT INFORMATION
  Report Type: 
  Country: None (occurrence: None)
  Receive Date: 20090219
  Receipt Date: 20090209
  Transmission Date: 20090719
  Serious: Yes (Disabling)
  Sender: FDA-Public Use
  Company Number: GB-ROCHE-613618

PATIENT
  Age: 26 Year
  Sex: Female
  Weight: 85 kg

DRUGS (3)
  1. ORLISTAT [Suspect]
     Indication: OBESITY
     Route: 048
     Dates: start: 20081215, end: 20090112
  2. CLOZARIL [Concomitant]
     Indication: SCHIZOPHRENIA
     Route: 047
     Dates: start: 20040101
  3. CLOZARIL [Concomitant]
     Route: 047
     Dates: start: 20080527

REACTIONS (1)
  - PSYCHOTIC DISORDER [None]
